FAERS Safety Report 14856652 (Version 1)
Quarter: 2018Q2

REPORT INFORMATION
  Report Type: Spontaneous
  Country: US (occurrence: US)
  Receive Date: 20180507
  Receipt Date: 20180507
  Transmission Date: 20180711
  Serious: No
  Sender: FDA-Public Use
  Company Number: US-ROCHE-2025970

PATIENT
  Sex: Female

DRUGS (20)
  1. ESBRIET [Suspect]
     Active Substance: PIRFENIDONE
     Indication: IDIOPATHIC PULMONARY FIBROSIS
     Route: 048
     Dates: start: 20170414
  2. LEVAQUIN [Concomitant]
     Active Substance: LEVOFLOXACIN
  3. CEFDINIR. [Concomitant]
     Active Substance: CEFDINIR
  4. LEVOTHYROXINE SODIUM. [Concomitant]
     Active Substance: LEVOTHYROXINE SODIUM
  5. VENTOLIN HFA [Concomitant]
     Active Substance: ALBUTEROL SULFATE
  6. DILTIAZEM HCL [Concomitant]
     Active Substance: DILTIAZEM HYDROCHLORIDE
  7. DOXYCYCLINE MONOHYDRATE [Concomitant]
     Active Substance: DOXYCYCLINE
  8. LEVALBUTEROL TARTRATE. [Concomitant]
     Active Substance: LEVALBUTEROL TARTRATE
  9. OMEPRAZOLE. [Concomitant]
     Active Substance: OMEPRAZOLE
  10. ASPIRIN. [Concomitant]
     Active Substance: ASPIRIN
  11. CETIRIZINE HCL [Concomitant]
     Active Substance: CETIRIZINE HYDROCHLORIDE
     Indication: HYPERSENSITIVITY
  12. CARTIA XT [Concomitant]
     Active Substance: DILTIAZEM HYDROCHLORIDE
  13. ELIQUIS [Concomitant]
     Active Substance: APIXABAN
  14. BENZONATATE. [Concomitant]
     Active Substance: BENZONATATE
  15. PREDNISONE. [Concomitant]
     Active Substance: PREDNISONE
  16. PROAIR HFA [Concomitant]
     Active Substance: ALBUTEROL SULFATE
  17. AZITHROMYCIN ANHYDROUS. [Concomitant]
     Active Substance: AZITHROMYCIN ANHYDROUS
  18. LOVASTATIN. [Concomitant]
     Active Substance: LOVASTATIN
  19. ALBUTEROL SULFATE. [Concomitant]
     Active Substance: ALBUTEROL SULFATE
     Route: 065
  20. TUSSIONEX PENNKINETIC [Concomitant]
     Active Substance: CHLORPHENIRAMINE\HYDROCODONE
     Route: 065

REACTIONS (2)
  - Nasopharyngitis [Unknown]
  - Productive cough [Unknown]
